FAERS Safety Report 8786547 (Version 2)
Quarter: 2012Q4

REPORT INFORMATION
  Report Type: 
  Country: CA (occurrence: CA)
  Receive Date: 20120914
  Receipt Date: 20121115
  Transmission Date: 20130627
  Serious: Yes (Other)
  Sender: FDA-Public Use
  Company Number: CA-AMGEN-CANSP2012057723

PATIENT
  Age: 74 Year
  Sex: Female
  Weight: 54 kg

DRUGS (18)
  1. PROLIA [Suspect]
     Indication: OSTEOPOROSIS
     Dosage: UNK UNK, q6mo
     Route: 058
     Dates: start: 20120416
  2. PROLIA [Suspect]
  3. ACETAMINOPHEN [Concomitant]
     Dosage: 500 mg, prn (4-6h)
  4. ACTONEL [Concomitant]
     Dosage: 35 mg, qwk
  5. ALPRAZOLAM [Concomitant]
     Dosage: 0.5 mg, qhs
  6. ANTIPHLOGISTINE                    /00869601/ [Concomitant]
     Dosage: UNK UNK, bid
  7. ASA [Concomitant]
     Dosage: 80 mg, qd
  8. BECONASE [Concomitant]
     Dosage: 1 spray, BID
  9. CALCIUM CARBONATE [Concomitant]
     Dosage: 1 DF, bid
  10. DOCUSATE SODIUM [Concomitant]
     Dosage: 200 mg, bid
  11. GRAVOL [Concomitant]
     Dosage: 50 mg, qd (PRN)
  12. HYDROCORTISONE [Concomitant]
     Dosage: 1 UNK, UNK
     Route: 061
  13. IMURAN                             /00001501/ [Concomitant]
     Dosage: 60 mg, bid
  14. MULTIVITAMINS W/MINERALS [Concomitant]
     Dosage: 1 DF, qd
     Route: 048
  15. PLAQUENIL                          /00072602/ [Concomitant]
     Dosage: 200mg, Tablet 1.5tab QD
  16. PREDNISONE [Concomitant]
     Dosage: 5 mg, qd
  17. PREVACID [Concomitant]
     Dosage: 30 mg, bid
  18. VITAMIN D3 [Concomitant]
     Dosage: 5000 IU, qd

REACTIONS (18)
  - Fall [Recovered/Resolved]
  - Rib fracture [Recovered/Resolved]
  - Muscle spasms [Recovered/Resolved]
  - Oedema peripheral [Recovered/Resolved]
  - Back disorder [Recovered/Resolved]
  - Dizziness [Recovered/Resolved]
  - Gait disturbance [Recovered/Resolved]
  - Ataxia [Recovered/Resolved]
  - Fatigue [Recovered/Resolved]
  - Pain [Recovered/Resolved]
  - Urinary retention [Recovered/Resolved]
  - Dysuria [Recovered/Resolved]
  - Skin exfoliation [Recovered/Resolved]
  - Spinal osteoarthritis [Recovered/Resolved]
  - Hypokinesia [Recovered/Resolved]
  - Asthenia [Recovered/Resolved]
  - Musculoskeletal chest pain [Recovered/Resolved]
  - Contusion [Recovered/Resolved]
